FAERS Safety Report 21635367 (Version 1)
Quarter: 2022Q4

REPORT INFORMATION
  Report Type: Spontaneous
  Country: US (occurrence: US)
  Receive Date: 20221123
  Receipt Date: 20221123
  Transmission Date: 20230113
  Serious: Yes (Hospitalization, Disabling, Other)
  Sender: FDA-Public Use
  Company Number: US-PFIZER INC-202201321914

PATIENT
  Age: 89 Year
  Sex: Male
  Weight: 72.57 kg

DRUGS (4)
  1. VYNDAMAX [Suspect]
     Active Substance: TAFAMIDIS
     Indication: Cardiac amyloidosis
     Dosage: 61 MG, 1X/DAY
     Route: 048
     Dates: start: 202211, end: 202211
  2. GABAPENTIN [Concomitant]
     Active Substance: GABAPENTIN
     Indication: Neuritis
     Dosage: 900 MG, DAILY (SPREAD OUT OVER 24 HOURS)
  3. GABAPENTIN [Concomitant]
     Active Substance: GABAPENTIN
     Indication: Neuralgia
  4. OMEPRAZOLE [Concomitant]
     Active Substance: OMEPRAZOLE
     Dosage: UNK

REACTIONS (8)
  - Foreign body in throat [Recovered/Resolved]
  - Burning sensation [Recovered/Resolved]
  - Tongue oedema [Recovered/Resolved]
  - Throat tightness [Recovered/Resolved]
  - Swollen tongue [Recovered/Resolved]
  - Glossitis [Recovered/Resolved]
  - Glossodynia [Recovered/Resolved]
  - Dysphagia [Recovered/Resolved]

NARRATIVE: CASE EVENT DATE: 20221101
